FAERS Safety Report 7068178-1 (Version None)
Quarter: 2010Q4

REPORT INFORMATION
  Report Type: 
  Country: None (occurrence: None)
  Receive Date: 20101028
  Receipt Date: 20101018
  Transmission Date: 20110411
  Serious: Yes (Hospitalization, Other)
  Sender: FDA-Public Use
  Company Number: US-ROCHE-722613

PATIENT
  Sex: Male
  Weight: 61.2 kg

DRUGS (3)
  1. ACCUTANE [Suspect]
     Indication: ACNE
     Route: 065
     Dates: start: 20010316, end: 20010801
  2. ACCUTANE [Suspect]
     Route: 065
     Dates: start: 20030916, end: 20040204
  3. ADVIL [Concomitant]

REACTIONS (6)
  - ARTHRALGIA [None]
  - BLOOD ALKALINE PHOSPHATASE INCREASED [None]
  - CHAPPED LIPS [None]
  - CROHN'S DISEASE [None]
  - INFLAMMATORY BOWEL DISEASE [None]
  - NEPHROLITHIASIS [None]
